FAERS Safety Report 21705369 (Version 2)
Quarter: 2022Q4

REPORT INFORMATION
  Report Type: Spontaneous
  Country: GB (occurrence: GB)
  Receive Date: 20221209
  Receipt Date: 20221227
  Transmission Date: 20230112
  Serious: Yes (Life-Threatening, Hospitalization, Other)
  Sender: FDA-Public Use
  Company Number: GB-Accord-290843

PATIENT
  Age: 11 Year
  Sex: Male
  Weight: 48 kg

DRUGS (6)
  1. ZOLEDRONIC ACID [Suspect]
     Active Substance: ZOLEDRONIC ACID
     Indication: Osteoporosis
     Dosage: INFUSION, 0.5 MG/KG
     Route: 042
  2. ACETAMINOPHEN [Concomitant]
     Active Substance: ACETAMINOPHEN
     Indication: Prophylaxis
  3. PERINDOPRIL [Concomitant]
     Active Substance: PERINDOPRIL
     Indication: Ejection fraction decreased
  4. CALCIUM [Concomitant]
     Active Substance: CALCIUM
     Indication: Mineral supplementation
     Dosage: 15 MMOL
  5. ONDANSETRON [Concomitant]
     Active Substance: ONDANSETRON
     Indication: Prophylaxis
  6. DEFLAZACORT [Concomitant]
     Active Substance: DEFLAZACORT
     Indication: Duchenne muscular dystrophy

REACTIONS (12)
  - Cardiac ventricular thrombosis [Recovered/Resolved]
  - Left ventricular dysfunction [Recovered/Resolved]
  - Hypercoagulation [Recovered/Resolved]
  - Acute phase reaction [Recovered/Resolved]
  - Hypokalaemia [Recovered/Resolved]
  - Hypocalcaemia [Recovered/Resolved]
  - Hypophosphataemia [Recovered/Resolved]
  - Infusion related reaction [Recovered/Resolved]
  - Mitral valve incompetence [Recovered/Resolved]
  - Hyponatraemia [Recovered/Resolved]
  - Renal impairment [Recovered/Resolved]
  - Condition aggravated [Recovered/Resolved]
